FAERS Safety Report 4444287-8 (Version None)
Quarter: 2004Q3

REPORT INFORMATION
  Report Type: 
  Country: None (occurrence: None)
  Receive Date: 20040813
  Receipt Date: 20030929
  Transmission Date: 20050211
  Serious: No
  Sender: FDA-Public Use
  Company Number: US-JNJFOC-20040703892

PATIENT
  Age: 11 Month
  Sex: Male
  Weight: 10.8863 kg

DRUGS (3)
  1. MOTRIN [Suspect]
     Indication: EAR PAIN
  2. OMNICEF [Suspect]
     Indication: EAR INFECTION
     Dosage: 156 MG, 1 IN 1 DAY, ORAL
     Route: 048
     Dates: start: 20030131
  3. TRIOMINIC (TRIOMINIC) [Concomitant]

REACTIONS (2)
  - FAECES DISCOLOURED [None]
  - GASTROINTESTINAL HAEMORRHAGE [None]
